FAERS Safety Report 8959206 (Version 2)
Quarter: 2013Q1

REPORT INFORMATION
  Report Type: Spontaneous
  Country: JP (occurrence: JP)
  Receive Date: 20121212
  Receipt Date: 20130205
  Transmission Date: 20140127
  Serious: Yes (Death, Other)
  Sender: FDA-Public Use
  Company Number: JP-ELI_LILLY_AND_COMPANY-JP201208005734

PATIENT
  Sex: Female

DRUGS (2)
  1. FORTEO [Suspect]
     Dosage: UNK
     Route: 058
     Dates: end: 20120801
  2. FORTEO [Suspect]
     Dosage: UNK
     Route: 058
     Dates: start: 20121129

REACTIONS (4)
  - Death [Fatal]
  - Pulmonary oedema [Unknown]
  - Oedema [Unknown]
  - Liver function test abnormal [Unknown]
